FAERS Safety Report 17434046 (Version 1)
Quarter: 2020Q1

REPORT INFORMATION
  Report Type: Spontaneous
  Country: US (occurrence: US)
  Receive Date: 20200218
  Receipt Date: 20200218
  Transmission Date: 20200409
  Serious: Yes (Death)
  Sender: FDA-Public Use
  Company Number: None

PATIENT
  Age: 13 Month
  Sex: Male
  Weight: 9.25 kg

DRUGS (2)
  1. SYNAGIS [Concomitant]
     Active Substance: PALIVIZUMAB
     Dates: start: 20200122, end: 20200126
  2. SYNAGIS [Suspect]
     Active Substance: PALIVIZUMAB
     Indication: HYPOPLASTIC LEFT HEART SYNDROME
     Dosage: ?          OTHER FREQUENCY:28 DAYS;?
     Route: 030
     Dates: start: 20200122, end: 20200126

REACTIONS (1)
  - Cardiac failure [None]

NARRATIVE: CASE EVENT DATE: 20200126
